FAERS Safety Report 7249510-2 (Version None)
Quarter: 2011Q1

REPORT INFORMATION
  Report Type: 
  Country: None (occurrence: None)
  Receive Date: 20110128
  Receipt Date: 20101206
  Transmission Date: 20110831
  Serious: Yes (Other)
  Sender: FDA-Public Use
  Company Number: US-BAYER-201026572NA

PATIENT
  Sex: Female
  Weight: 141 kg

DRUGS (6)
  1. ACETAMINOPHEN [Concomitant]
     Indication: ANALGESIC THERAPY
  2. ADVIL LIQUI-GELS [Concomitant]
  3. EXCEDRIN (MIGRAINE) [Concomitant]
     Indication: ANALGESIC THERAPY
  4. NSAID'S [Concomitant]
  5. SYNTHROID [Concomitant]
     Indication: BLOOD THYROID STIMULATING HORMONE DECREASED
  6. YAZ [Suspect]
     Indication: ORAL CONTRACEPTION
     Dosage: UNK UNK, QD
     Route: 048
     Dates: start: 20090501, end: 20091101

REACTIONS (5)
  - DEEP VEIN THROMBOSIS [None]
  - ABDOMINAL PAIN UPPER [None]
  - CHOLELITHIASIS [None]
  - ABDOMINAL DISTENSION [None]
  - PAIN IN EXTREMITY [None]
